FAERS Safety Report 9439131 (Version 1)
Quarter: 2013Q3

REPORT INFORMATION
  Report Type: Spontaneous
  Country: DE (occurrence: DE)
  Receive Date: 20130802
  Receipt Date: 20130802
  Transmission Date: 20140515
  Serious: Yes (Hospitalization, Other)
  Sender: FDA-Public Use
  Company Number: DE-ASTRAZENECA-2013SE56833

PATIENT
  Age: 1 Day
  Sex: Male
  Weight: 2.6 kg

DRUGS (1)
  1. BELOC-ZOK MITE [Suspect]
     Indication: HYPERTENSION
     Route: 063

REACTIONS (5)
  - Exposure during breast feeding [Unknown]
  - Myoclonus [Unknown]
  - Oxygen saturation decreased [Recovered/Resolved]
  - Convulsion neonatal [Unknown]
  - Bradycardia neonatal [Recovered/Resolved]
